FAERS Safety Report 10683897 (Version 2)
Quarter: 2015Q1

REPORT INFORMATION
  Report Type: Spontaneous
  Country: US (occurrence: US)
  Receive Date: 20141230
  Receipt Date: 20150129
  Transmission Date: 20150720
  Serious: No
  Sender: FDA-Public Use
  Company Number: US-BRISTOL-MYERS SQUIBB COMPANY-BMS-2014-002156

PATIENT
  Sex: Female

DRUGS (3)
  1. ORENCIA [Suspect]
     Active Substance: ABATACEPT
     Indication: RHEUMATOID ARTHRITIS
     Dosage: 125 MG, QWK
     Route: 058
     Dates: start: 201410, end: 201412
  2. ORENCIA [Suspect]
     Active Substance: ABATACEPT
     Dosage: 125 MG
  3. ORENCIA [Suspect]
     Active Substance: ABATACEPT
     Dosage: 125 MG

REACTIONS (1)
  - Drug ineffective [Unknown]
